FAERS Safety Report 4352241-X (Version None)
Quarter: 2004Q2

REPORT INFORMATION
  Report Type: 
  Country: None (occurrence: None)
  Receive Date: 20040428
  Receipt Date: 20040412
  Transmission Date: 20050107
  Serious: Yes (Hospitalization)
  Sender: FDA-Public Use
  Company Number: JP_040202664

PATIENT
  Age: 8 Year
  Sex: Female
  Weight: 29 kg

DRUGS (3)
  1. HUMATROPE [Suspect]
     Indication: BODY HEIGHT BELOW NORMAL
     Dosage: 0.5 IU/KG OTHER
     Route: 050
     Dates: start: 19991110
  2. HUMATROPE [Suspect]
     Indication: GROWTH HORMONE DEFICIENCY
     Dosage: 0.5 IU/KG OTHER
     Route: 050
     Dates: start: 19991110
  3. LEVOTHYROXINE SODIUM [Concomitant]

REACTIONS (4)
  - ARTERIOSCLEROSIS [None]
  - DISEASE PROGRESSION [None]
  - PROCEDURAL COMPLICATION [None]
  - PULMONARY ARTERY STENOSIS [None]
